FAERS Safety Report 9206505 (Version 1)
Quarter: 2013Q2

REPORT INFORMATION
  Report Type: Spontaneous
  Country: JP (occurrence: JP)
  Receive Date: 20130403
  Receipt Date: 20130403
  Transmission Date: 20140414
  Serious: Yes (Other)
  Sender: FDA-Public Use
  Company Number: JP-PFIZER INC-2013105077

PATIENT
  Age: 64 Year
  Sex: Male

DRUGS (9)
  1. CEFAZOLIN [Suspect]
     Dosage: 4 G/DAY
     Route: 042
     Dates: start: 20130306, end: 20130319
  2. CEFAZOLIN [Suspect]
     Dosage: 6 G/DAY
     Route: 042
     Dates: start: 20130320
  3. FAMOTIDINE [Suspect]
  4. SOLDEM 1 [Concomitant]
  5. BFLUID [Concomitant]
  6. VANCOMYCIN [Concomitant]
  7. OLMETEC [Concomitant]
  8. LOXOPROFEN SODIUM [Concomitant]
  9. SELBEX [Concomitant]
     Route: 048

REACTIONS (2)
  - Overdose [Not Recovered/Not Resolved]
  - Disseminated intravascular coagulation [Not Recovered/Not Resolved]
